FAERS Safety Report 16270575 (Version 1)
Quarter: 2019Q2

REPORT INFORMATION
  Report Type: Spontaneous
  Country: US (occurrence: US)
  Receive Date: 20190503
  Receipt Date: 20190503
  Transmission Date: 20190711
  Serious: Yes (Other)
  Sender: FDA-Public Use
  Company Number: US-REGENERON PHARMACEUTICALS, INC.-2019-29358

PATIENT

DRUGS (3)
  1. EYLEA [Suspect]
     Active Substance: AFLIBERCEPT
     Indication: NEOVASCULAR AGE-RELATED MACULAR DEGENERATION
     Dosage: UNK, Q4W, RIGHT EYE
     Route: 031
     Dates: start: 201809
  2. EYLEA [Suspect]
     Active Substance: AFLIBERCEPT
     Dosage: UNK, Q4W, LAST DOSE IN THE RIGHT EYE
     Route: 031
     Dates: start: 20190409, end: 20190409
  3. PRESERVISION AREDS [Concomitant]
     Active Substance: MINERALS\VITAMINS
     Indication: PRODUCT USED FOR UNKNOWN INDICATION
     Dosage: UNK

REACTIONS (11)
  - Eye pain [Unknown]
  - Intraocular pressure increased [Unknown]
  - Retinal injury [Unknown]
  - Wrong technique in product usage process [Unknown]
  - Eye disorder [Unknown]
  - Aniseikonia [Unknown]
  - Disease progression [Unknown]
  - Myopia [Recovering/Resolving]
  - Visual impairment [Unknown]
  - Open globe injury [Unknown]
  - Vision blurred [Recovering/Resolving]

NARRATIVE: CASE EVENT DATE: 201809
